FAERS Safety Report 21765064 (Version 2)
Quarter: 2023Q1

REPORT INFORMATION
  Report Type: Spontaneous
  Country: GR (occurrence: GR)
  Receive Date: 20221222
  Receipt Date: 20230214
  Transmission Date: 20230417
  Serious: Yes (Other)
  Sender: FDA-Public Use
  Company Number: GR-AMGEN-GRCSP2022216835

PATIENT

DRUGS (1)
  1. PROLIA [Suspect]
     Active Substance: DENOSUMAB
     Indication: Product used for unknown indication
     Dosage: UNK, DURATION 1-2 YEARS
     Route: 065

REACTIONS (3)
  - Atypical femur fracture [Unknown]
  - Periprosthetic fracture [Unknown]
  - Post procedural complication [Unknown]
